FAERS Safety Report 5964985-4 (Version None)
Quarter: 2008Q4

REPORT INFORMATION
  Report Type: 
  Country: None (occurrence: None)
  Receive Date: 20081125
  Receipt Date: 20081113
  Transmission Date: 20090506
  Serious: Yes (Other)
  Sender: FDA-Public Use
  Company Number: PHHY2008BR28290

PATIENT
  Age: 50 Year
  Sex: Female
  Weight: 60 kg

DRUGS (1)
  1. TRILEPTAL [Suspect]
     Indication: CONVULSION
     Dosage: 600 MG, BID
     Route: 048

REACTIONS (8)
  - CONVULSION [None]
  - FALL [None]
  - MOTOR DYSFUNCTION [None]
  - NERVOUSNESS [None]
  - PARTIAL SEIZURES [None]
  - STRESS [None]
  - TREATMENT NONCOMPLIANCE [None]
  - TREMOR [None]
